FAERS Safety Report 7932761-9 (Version None)
Quarter: 2011Q4

REPORT INFORMATION
  Report Type: 
  Country: None (occurrence: None)
  Receive Date: 20111122
  Receipt Date: 20111115
  Transmission Date: 20120403
  Serious: Yes (Hospitalization)
  Sender: FDA-Public Use
  Company Number: KR-ROXANE LABORATORIES, INC.-2011-RO-01651RO

PATIENT
  Age: 22 Year
  Sex: Male

DRUGS (4)
  1. HERBAL NERVE TONIC LIQUID [Concomitant]
  2. AZATHIOPRINE [Suspect]
     Dosage: 50 MG
  3. AZATHIOPRINE [Suspect]
     Indication: CROHN'S DISEASE
     Dosage: 25 MG
  4. MESALAMINE [Concomitant]

REACTIONS (2)
  - PANCYTOPENIA [None]
  - ESCHERICHIA SEPSIS [None]
